FAERS Safety Report 5531587-3 (Version None)
Quarter: 2007Q4

REPORT INFORMATION
  Report Type: 
  Country: None (occurrence: None)
  Receive Date: 20071128
  Receipt Date: 20071121
  Transmission Date: 20080405
  Serious: Yes (Hospitalization, Other)
  Sender: FDA-Public Use
  Company Number: 167-C5013-07081153

PATIENT
  Age: 58 Year
  Sex: Male
  Weight: 86 kg

DRUGS (16)
  1. CC-5013 (LENALIDOMIDE) (CAPSULES) [Suspect]
     Indication: MULTIPLE MYELOMA
     Dosage: 25 MG, D1-21, ORAL, 25 MG, DAILY, CYCLE 2, ORAL, 15 MG, DAILY, CYCLE 3, ORAL
     Route: 048
     Dates: start: 20070808, end: 20070820
  2. CC-5013 (LENALIDOMIDE) (CAPSULES) [Suspect]
     Indication: MULTIPLE MYELOMA
     Dosage: 25 MG, D1-21, ORAL, 25 MG, DAILY, CYCLE 2, ORAL, 15 MG, DAILY, CYCLE 3, ORAL
     Route: 048
     Dates: start: 20070711
  3. CC-5013 (LENALIDOMIDE) (CAPSULES) [Suspect]
     Indication: MULTIPLE MYELOMA
     Dosage: 25 MG, D1-21, ORAL, 25 MG, DAILY, CYCLE 2, ORAL, 15 MG, DAILY, CYCLE 3, ORAL
     Route: 048
     Dates: start: 20070926
  4. DEXAMETHASONE TAB [Suspect]
     Indication: MULTIPLE MYELOMA
     Dosage: 40 MG, CYCLE 2, 40 MG, CYCLE 3
     Dates: start: 20070808, end: 20070820
  5. DEXAMETHASONE TAB [Suspect]
     Indication: MULTIPLE MYELOMA
     Dosage: 40 MG, CYCLE 2, 40 MG, CYCLE 3
     Dates: start: 20070711
  6. DEXAMETHASONE TAB [Suspect]
     Indication: MULTIPLE MYELOMA
     Dosage: 40 MG, CYCLE 2, 40 MG, CYCLE 3
     Dates: start: 20070926
  7. PREDNISONE [Concomitant]
  8. INSULIN [Concomitant]
  9. CLODRONATE (CLODRONATE DISODIUM) [Concomitant]
  10. AMITRIPTYLINE HCL [Concomitant]
  11. CODEINE PHOSPHATE (CODEINE PHOSPHATE) [Concomitant]
  12. ACV (ACICLOVIR) [Concomitant]
  13. MORPHINE [Concomitant]
  14. DIPYRIDAMOLE [Concomitant]
  15. BLOOD (BLOOD TRANSFUSION, AUXILIARY PRODUCTS) [Concomitant]
  16. NEULASTA [Concomitant]

REACTIONS (12)
  - ACUTE CORONARY SYNDROME [None]
  - ASTHENIA [None]
  - DIABETES MELLITUS INADEQUATE CONTROL [None]
  - DIZZINESS [None]
  - DYSPNOEA [None]
  - HAEMATOCRIT DECREASED [None]
  - HAEMOGLOBIN DECREASED [None]
  - HYPERGLYCAEMIA [None]
  - HYPERHIDROSIS [None]
  - PAIN IN EXTREMITY [None]
  - PLATELET COUNT DECREASED [None]
  - RED BLOOD CELL COUNT DECREASED [None]
